FAERS Safety Report 6256087-7 (Version None)
Quarter: 2009Q2

REPORT INFORMATION
  Report Type: 
  Country: None (occurrence: None)
  Receive Date: 20090630
  Receipt Date: 20090630
  Transmission Date: 20091009
  Serious: Yes (Life-Threatening, Other)
  Sender: FDA-Public Use
  Company Number: None

PATIENT
  Age: 27 Year
  Sex: Female
  Weight: 72.5755 kg

DRUGS (3)
  1. ZONISAMIDE [Suspect]
     Indication: COMPLEX PARTIAL SEIZURES
     Dosage: 200 MG AT BEDTIME PO
     Route: 048
     Dates: start: 20090212, end: 20090614
  2. KEPPRA [Concomitant]
  3. .. [Concomitant]

REACTIONS (7)
  - ANGER [None]
  - ANXIETY [None]
  - DEPRESSION [None]
  - FEAR [None]
  - HYPOPHAGIA [None]
  - PALPITATIONS [None]
  - SUICIDAL IDEATION [None]
